FAERS Safety Report 17410378 (Version 2)
Quarter: 2020Q2

REPORT INFORMATION
  Report Type: Spontaneous
  Country: BR (occurrence: BR)
  Receive Date: 20200212
  Receipt Date: 20200401
  Transmission Date: 20200713
  Serious: Yes (Other)
  Sender: FDA-Public Use
  Company Number: BR-DSJP-DSU-2020-104555

PATIENT

DRUGS (1)
  1. OLMETEC HCT [Suspect]
     Active Substance: HYDROCHLOROTHIAZIDE\OLMESARTAN MEDOXOMIL
     Indication: HYPERTENSION
     Dosage: 1 DF, QD
     Route: 048
     Dates: end: 202002

REACTIONS (14)
  - Gait inability [Unknown]
  - Dyspnoea [Unknown]
  - Spinal fracture [Unknown]
  - Dysstasia [Unknown]
  - Urinary tract infection [Unknown]
  - Urine odour abnormal [Unknown]
  - Emphysema [Unknown]
  - Pain [Unknown]
  - Pneumonia [Unknown]
  - Weight decreased [Unknown]
  - Respiratory disorder [Unknown]
  - Peripheral swelling [Unknown]
  - Cough [Unknown]
  - Renal disorder [Not Recovered/Not Resolved]

NARRATIVE: CASE EVENT DATE: 201912
